FAERS Safety Report 11766548 (Version 2)
Quarter: 2015Q4

REPORT INFORMATION
  Report Type: Report from Study
  Country: CA (occurrence: CA)
  Receive Date: 20151123
  Receipt Date: 20151201
  Transmission Date: 20160304
  Serious: Yes (Hospitalization, Other)
  Sender: FDA-Public Use
  Company Number: CA-AMGEN-CANSP2013034896

PATIENT
  Age: 72 Year
  Sex: Female

DRUGS (9)
  1. ENBREL [Suspect]
     Active Substance: ETANERCEPT
     Dosage: UNK
     Route: 065
     Dates: end: 201507
  2. TYLENOL [Concomitant]
     Active Substance: ACETAMINOPHEN
     Indication: ARTHRITIS
     Dosage: UNK
  3. VANCOMYCIN [Concomitant]
     Active Substance: VANCOMYCIN
     Indication: BACTERIAL INFECTION
     Dosage: UNK
     Route: 042
     Dates: start: 20141218, end: 201510
  4. PREDNISONE. [Concomitant]
     Active Substance: PREDNISONE
     Dosage: UNK
  5. RABEPRAZOLE [Concomitant]
     Active Substance: RABEPRAZOLE
     Dosage: UNK
  6. ENBREL [Suspect]
     Active Substance: ETANERCEPT
     Indication: RHEUMATOID ARTHRITIS
     Dosage: 50 MG, UNK
     Route: 065
     Dates: start: 20061014, end: 201412
  7. OXYCONTIN [Concomitant]
     Active Substance: OXYCODONE HYDROCHLORIDE
     Dosage: UNK
  8. CELEBREX [Concomitant]
     Active Substance: CELECOXIB
     Dosage: UNK
  9. GENTAMYCIN                         /00047101/ [Concomitant]
     Active Substance: GENTAMICIN
     Dosage: UNK
     Dates: end: 201510

REACTIONS (16)
  - Osteomyelitis [Unknown]
  - Osteoporosis [Unknown]
  - Feeling abnormal [Unknown]
  - Road traffic accident [Recovering/Resolving]
  - Localised infection [Not Recovered/Not Resolved]
  - Laceration [Not Recovered/Not Resolved]
  - Lower limb fracture [Recovering/Resolving]
  - Pain [Unknown]
  - Spinal fracture [Unknown]
  - Hyperhidrosis [Unknown]
  - Bacterial infection [Recovering/Resolving]
  - Skin ulcer [Not Recovered/Not Resolved]
  - Back pain [Unknown]
  - Pelvic fracture [Unknown]
  - Intervertebral disc degeneration [Unknown]
  - Arthralgia [Unknown]

NARRATIVE: CASE EVENT DATE: 201206
